FAERS Safety Report 6217999-3 (Version None)
Quarter: 2009Q2

REPORT INFORMATION
  Report Type: 
  Country: None (occurrence: None)
  Receive Date: 20090604
  Receipt Date: 20090604
  Transmission Date: 20091009
  Serious: Yes (Hospitalization)
  Sender: FDA-Public Use
  Company Number: None

PATIENT
  Age: 87 Year
  Sex: Female
  Weight: 53.5244 kg

DRUGS (1)
  1. WARFARIN SODIUM [Suspect]
     Indication: ATRIAL FIBRILLATION
     Dosage: COUMDAIN -WARFARIN- 5 MG DAILY PO
     Route: 048
     Dates: start: 20090522, end: 20090531

REACTIONS (1)
  - INTERNATIONAL NORMALISED RATIO INCREASED [None]
